FAERS Safety Report 8464484-4 (Version None)
Quarter: 2012Q2

REPORT INFORMATION
  Report Type: 
  Country: None (occurrence: None)
  Receive Date: 20120626
  Receipt Date: 20120612
  Transmission Date: 20120825
  Serious: Yes (Other)
  Sender: FDA-Public Use
  Company Number: DE-RANBAXY-2012RR-57195

PATIENT
  Age: 25 Year
  Sex: Female

DRUGS (5)
  1. CITALOPRAM HYDROBROMIDE [Suspect]
     Indication: MAJOR DEPRESSION
     Dosage: 20-60 MG, INCREASING DOSES
     Route: 065
     Dates: start: 20080101
  2. METHYLPREDNISOLONE [Suspect]
     Indication: OPTIC NEURITIS
     Dosage: 1 G, UNK
     Route: 042
  3. ZOLPIDEM [Suspect]
     Indication: SLEEP DISORDER
     Dosage: 5 MG, TRANSIENTLY
     Route: 065
  4. METHYLPREDNISOLONE [Suspect]
     Dosage: DOSE REDUCTION STEP-BY-STEP WITH 10 DAYS
     Route: 048
  5. MIRTAZAPINE [Suspect]
     Indication: MOOD SWINGS
     Dosage: 15 UP TO 30 MG
     Route: 065

REACTIONS (8)
  - HEADACHE [None]
  - BLOOD GLUCOSE INCREASED [None]
  - OEDEMA PERIPHERAL [None]
  - GALACTORRHOEA [None]
  - OPTIC NEURITIS [None]
  - PARAESTHESIA [None]
  - MYDRIASIS [None]
  - DYSAESTHESIA [None]
